FAERS Safety Report 4580965-8 (Version None)
Quarter: 2005Q1

REPORT INFORMATION
  Report Type: 
  Country: None (occurrence: None)
  Receive Date: 20050214
  Receipt Date: 20040707
  Transmission Date: 20050727
  Serious: No
  Sender: FDA-Public Use
  Company Number: US-GLAXOSMITHKLINE-A0517261A

PATIENT
  Age: 57 Year
  Sex: Male

DRUGS (3)
  1. LAMICTAL [Suspect]
     Indication: BIPOLAR DISORDER
     Route: 048
  2. LIPITOR [Concomitant]
  3. DYAZIDE [Concomitant]

REACTIONS (4)
  - ANOREXIA [None]
  - GASTRITIS [None]
  - NAUSEA [None]
  - WEIGHT DECREASED [None]
